FAERS Safety Report 4307035-8 (Version None)
Quarter: 2004Q1

REPORT INFORMATION
  Report Type: 
  Country: None (occurrence: None)
  Receive Date: 20040227
  Receipt Date: 20040218
  Transmission Date: 20041129
  Serious: Yes (Other)
  Sender: FDA-Public Use
  Company Number: FR-ROCHE-359318

PATIENT

DRUGS (1)
  1. ROACCUTANE [Suspect]
     Indication: ACNE
     Dates: end: 20020415

REACTIONS (3)
  - MATERNAL DRUGS AFFECTING FOETUS [None]
  - PREMATURE BABY [None]
  - TWIN PREGNANCY [None]
